FAERS Safety Report 4788371-8 (Version None)
Quarter: 2005Q3

REPORT INFORMATION
  Report Type: 
  Country: None (occurrence: None)
  Receive Date: 20050914
  Receipt Date: 20041120
  Transmission Date: 20060218
  Serious: Yes (Hospitalization, Other)
  Sender: FDA-Public Use
  Company Number: 163-20785-04110504

PATIENT
  Age: 60 Year
  Sex: Female
  Weight: 84.8 kg

DRUGS (4)
  1. THALOMID [Suspect]
     Indication: NON-SMALL CELL LUNG CANCER
     Dosage: 200 MG DAILY X 21 DAYS WITH WEEKLY TITRATION OF 100 MG TO 1000 MG MAX., ORAL
     Route: 048
     Dates: start: 20040615, end: 20040921
  2. PACLITAXEL [Suspect]
     Indication: NON-SMALL CELL LUNG CANCER
     Dosage: 225 MG/M2 OVER 3 HRS ON DAY 1EERY 21 DAYS X 2 INTRAVENOUS
     Route: 042
     Dates: start: 20040615, end: 20040901
  3. CARBOPLATIN [Suspect]
     Indication: NON-SMALL CELL LUNG CANCER
     Dosage: AUC=6 OVER 15-30 MIN. ON DAY 1 EVERY 21 DAYS X 2, INTRAVENOUS
     Route: 042
     Dates: start: 20040615, end: 20040901
  4. RADIATION (UNKNOWN) [Suspect]
     Indication: NON-SMALL CELL LUNG CANCER
     Dosage: 60 GY OVER 6 WEEKS BEGINNING BETWEEN DAYS 45-50,

REACTIONS (2)
  - DEEP VEIN THROMBOSIS [None]
  - RASH [None]
